FAERS Safety Report 25868776 (Version 1)
Quarter: 2025Q4

REPORT INFORMATION
  Report Type: Spontaneous
  Country: EU (occurrence: EU)
  Receive Date: 20251001
  Receipt Date: 20251001
  Transmission Date: 20260117
  Serious: Yes (Other)
  Sender: MSN LABORATORIES PRIVATE LIMITED
  Company Number: EU-EMA-DD-20241107-7482715-071610

PATIENT

DRUGS (30)
  1. FAMOTIDINE [Suspect]
     Active Substance: FAMOTIDINE
     Indication: Anaphylaxis prophylaxis
     Dosage: PREMEDICATION (ON DAYS OF DESENSITIZATION)
     Route: 065
  2. FAMOTIDINE [Suspect]
     Active Substance: FAMOTIDINE
     Indication: Anaphylaxis prophylaxis
  3. ISATUXIMAB [Suspect]
     Active Substance: ISATUXIMAB
     Indication: Plasma cell myeloma
     Dosage: UNK UNK, QCY/A NEW TREATMENT CYCLE WITH POMALIDOMIDE AND DEXAMETHASONE
     Route: 042
  4. ISATUXIMAB [Suspect]
     Active Substance: ISATUXIMAB
     Indication: Plasma cell myeloma
  5. DEXAMETHASONE [Suspect]
     Active Substance: DEXAMETHASONE
     Indication: Plasma cell myeloma
     Dosage: 40 MG (DAYS 1, 8, 15, AND 22)/NEW TREATMENT CYCLE WITH ISATUXIMAB AND POMALIDOMIDE
     Route: 048
  6. DEXAMETHASONE [Suspect]
     Active Substance: DEXAMETHASONE
     Indication: Plasma cell myeloma
  7. DEXAMETHASONE [Suspect]
     Active Substance: DEXAMETHASONE
     Indication: Anaphylaxis prophylaxis
  8. DEXAMETHASONE [Suspect]
     Active Substance: DEXAMETHASONE
     Indication: Anaphylaxis prophylaxis
  9. LENALIDOMIDE [Suspect]
     Active Substance: LENALIDOMIDE
     Indication: Plasma cell myeloma
     Dosage: UNK, QCY (DAY 1-21)
     Route: 048
  10. LENALIDOMIDE [Suspect]
     Active Substance: LENALIDOMIDE
     Indication: Plasma cell myeloma
  11. LEVOCETIRIZINE [Suspect]
     Active Substance: LEVOCETIRIZINE
     Indication: Anaphylaxis prophylaxis
     Dosage: PREMEDICATION (ON DAYS OF DESENSITIZATION)
     Route: 065
  12. LEVOCETIRIZINE [Suspect]
     Active Substance: LEVOCETIRIZINE
     Indication: Anaphylaxis prophylaxis
  13. MONTELUKAST [Suspect]
     Active Substance: MONTELUKAST
     Indication: Anaphylaxis prophylaxis
     Dosage: PREMEDICATION (ON DAYS OF DESENSITIZATION)
     Route: 065
  14. MONTELUKAST [Suspect]
     Active Substance: MONTELUKAST
     Indication: Anaphylaxis prophylaxis
  15. POMALIDOMIDE [Suspect]
     Active Substance: POMALIDOMIDE
     Indication: Plasma cell myeloma
     Dosage: UNK (WITH ISATUXIMAB AND DEXAMETHASONE)
     Route: 065
  16. CARFILZOMIB [Concomitant]
     Active Substance: CARFILZOMIB
     Dosage: UNK UNK, QCY (DAY 1, 8, 15)
     Route: 042
  17. CARFILZOMIB [Concomitant]
     Active Substance: CARFILZOMIB
  18. MELPHALAN [Concomitant]
     Active Substance: MELPHALAN
     Dosage: UNK, QCY HIGH-DOSE
     Route: 042
  19. MELPHALAN [Concomitant]
     Active Substance: MELPHALAN
  20. MONTELUKAST [Concomitant]
     Active Substance: MONTELUKAST
     Indication: Premedication
     Dosage: 10 MG
     Route: 065
  21. CLEMASTINE [Concomitant]
     Active Substance: CLEMASTINE
     Indication: Flushing
     Route: 042
  22. CLEMASTINE [Concomitant]
     Active Substance: CLEMASTINE
     Indication: Nausea
  23. CLEMASTINE [Concomitant]
     Active Substance: CLEMASTINE
     Indication: Cough
  24. CLEMASTINE [Concomitant]
     Active Substance: CLEMASTINE
     Indication: Dyspnoea
  25. CLEMASTINE [Concomitant]
     Active Substance: CLEMASTINE
     Indication: Tachycardia
  26. PREDNISOLONE [Concomitant]
     Active Substance: PREDNISOLONE
     Indication: Flushing
     Route: 042
  27. PREDNISOLONE [Concomitant]
     Active Substance: PREDNISOLONE
     Indication: Nausea
  28. PREDNISOLONE [Concomitant]
     Active Substance: PREDNISOLONE
     Indication: Cough
  29. PREDNISOLONE [Concomitant]
     Active Substance: PREDNISOLONE
     Indication: Dyspnoea
  30. PREDNISOLONE [Concomitant]
     Active Substance: PREDNISOLONE
     Indication: Tachycardia

REACTIONS (10)
  - Tachycardia [Recovered/Resolved]
  - Cough [Recovered/Resolved]
  - Dyspnoea [Recovered/Resolved]
  - Nasal obstruction [Recovered/Resolved]
  - Drug ineffective [Unknown]
  - Plasma cell myeloma [Unknown]
  - Flushing [Recovered/Resolved]
  - Nausea [Recovered/Resolved]
  - Dizziness [Recovered/Resolved]
  - Erythema [Recovered/Resolved]
